FAERS Safety Report 7903351-9 (Version None)
Quarter: 2011Q4

REPORT INFORMATION
  Report Type: 
  Country: None (occurrence: None)
  Receive Date: 20111109
  Receipt Date: 20111104
  Transmission Date: 20120403
  Serious: No
  Sender: FDA-Public Use
  Company Number: US-PFIZER INC-2011271528

PATIENT
  Sex: Female
  Weight: 72.562 kg

DRUGS (1)
  1. MORPHINE SULFATE [Suspect]
     Dosage: UNK
     Dates: start: 20110101, end: 20110101

REACTIONS (1)
  - DRUG HYPERSENSITIVITY [None]
